FAERS Safety Report 13490456 (Version 1)
Quarter: 2017Q2

REPORT INFORMATION
  Report Type: Report from Study
  Country: US (occurrence: US)
  Receive Date: 20170427
  Receipt Date: 20170427
  Transmission Date: 20170830
  Serious: Yes (Other)
  Sender: FDA-Public Use
  Company Number: US-BRISTOL-MYERS SQUIBB COMPANY-BMS-2017-033973

PATIENT
  Sex: Female

DRUGS (1)
  1. DASATINIB [Suspect]
     Active Substance: DASATINIB
     Indication: ACUTE LYMPHOCYTIC LEUKAEMIA
     Route: 048

REACTIONS (7)
  - Fluid retention [Unknown]
  - Fall [Unknown]
  - Hip surgery [Unknown]
  - Dyspnoea [Recovering/Resolving]
  - Upper limb fracture [Unknown]
  - Immunodeficiency [Unknown]
  - Nausea [Unknown]
